FAERS Safety Report 14603529 (Version 2)
Quarter: 2018Q2

REPORT INFORMATION
  Report Type: Report from Study
  Country: BR (occurrence: BR)
  Receive Date: 20180306
  Receipt Date: 20180403
  Transmission Date: 20180711
  Serious: Yes (Other)
  Sender: FDA-Public Use
  Company Number: PHHY2018BR036222

PATIENT
  Sex: Female
  Weight: 75 kg

DRUGS (1)
  1. ACLASTA [Suspect]
     Active Substance: ZOLEDRONIC ACID
     Indication: BONE DISORDER
     Dosage: 1 DF (5 MG/100 ML), Q12MO
     Route: 042

REACTIONS (14)
  - Malaise [Recovered/Resolved]
  - Labyrinthitis [Not Recovered/Not Resolved]
  - Drug intolerance [Unknown]
  - Gait inability [Not Recovered/Not Resolved]
  - Tooth disorder [Unknown]
  - Bone pain [Not Recovered/Not Resolved]
  - Nervousness [Recovered/Resolved]
  - Nausea [Recovered/Resolved]
  - Insomnia [Recovered/Resolved]
  - Arthropathy [Unknown]
  - Pain [Not Recovered/Not Resolved]
  - Depression [Recovered/Resolved]
  - Spinal pain [Not Recovered/Not Resolved]
  - Weight increased [Unknown]
